FAERS Safety Report 19483983 (Version 2)
Quarter: 2021Q3

REPORT INFORMATION
  Report Type: Report from Study
  Country: JP (occurrence: JP)
  Receive Date: 20210701
  Receipt Date: 20210726
  Transmission Date: 20211014
  Serious: Yes (Hospitalization, Disabling)
  Sender: FDA-Public Use
  Company Number: JP-BIOGEN-2019BI00821688

PATIENT
  Age: 48 Year
  Sex: Male
  Weight: 80 kg

DRUGS (28)
  1. PREDONINE [Suspect]
     Active Substance: PREDNISOLONE
     Route: 048
     Dates: start: 20200918, end: 20200923
  2. SOLU?MEDROL [Suspect]
     Active Substance: METHYLPREDNISOLONE SODIUM SUCCINATE
     Indication: MULTIPLE SCLEROSIS RELAPSE
     Route: 042
     Dates: start: 20200831, end: 20200902
  3. BILANOA [Concomitant]
     Active Substance: BILASTINE
     Indication: DERMATITIS CONTACT
     Route: 048
  4. MIRTAZAPINE. [Concomitant]
     Active Substance: MIRTAZAPINE
     Indication: DEPRESSION
     Route: 048
  5. YOKUKANSAN [Concomitant]
     Active Substance: HERBALS
     Indication: INSOMNIA
     Route: 048
     Dates: end: 20190923
  6. SENNOSIDE [Concomitant]
     Active Substance: SENNOSIDES
     Indication: RELAPSING-REMITTING MULTIPLE SCLEROSIS
     Route: 048
  7. ZOLPIDEM [Concomitant]
     Active Substance: ZOLPIDEM TARTRATE
     Indication: INSOMNIA
     Route: 048
  8. TECFIDERA [Suspect]
     Active Substance: DIMETHYL FUMARATE
     Route: 048
     Dates: start: 20190702, end: 20201013
  9. NIFEDIPINE CR [Concomitant]
     Active Substance: NIFEDIPINE
     Indication: HYPERTENSION
     Route: 048
     Dates: start: 20190618
  10. PREDONINE [Suspect]
     Active Substance: PREDNISOLONE
     Indication: MULTIPLE SCLEROSIS RELAPSE
     Route: 048
     Dates: start: 20200903, end: 20200909
  11. SHAKUYAKUKANZOTO [Concomitant]
     Active Substance: HERBALS
     Indication: RELAPSING-REMITTING MULTIPLE SCLEROSIS
     Route: 048
  12. SOFTEAR [Concomitant]
     Active Substance: CYANOCOBALAMIN
     Indication: ASTHENOPIA
     Dosage: APPROPRIATE AMOUNT
     Route: 047
  13. TECFIDERA [Suspect]
     Active Substance: DIMETHYL FUMARATE
     Indication: RELAPSING-REMITTING MULTIPLE SCLEROSIS
     Route: 048
     Dates: start: 20190618, end: 20190701
  14. PREDONINE [Suspect]
     Active Substance: PREDNISOLONE
     Route: 048
     Dates: start: 20201001, end: 20201006
  15. SITAGLIPTIN [Concomitant]
     Active Substance: SITAGLIPTIN
     Indication: DIABETES MELLITUS
     Route: 048
  16. FAMOTIDINE. [Concomitant]
     Active Substance: FAMOTIDINE
     Indication: GASTRIC ULCER
     Route: 048
  17. LYRICA [Concomitant]
     Active Substance: PREGABALIN
     Indication: RELAPSING-REMITTING MULTIPLE SCLEROSIS
     Route: 048
  18. SOLU?MEDROL [Suspect]
     Active Substance: METHYLPREDNISOLONE SODIUM SUCCINATE
     Route: 042
     Dates: start: 20200908, end: 20200910
  19. METHYCOBAL [Concomitant]
     Active Substance: METHYLCOBALAMIN
     Indication: RELAPSING-REMITTING MULTIPLE SCLEROSIS
     Route: 048
  20. NOVOLIN R [Concomitant]
     Active Substance: INSULIN HUMAN
     Indication: DIABETES MELLITUS
     Dosage: APPROPRIATE AMOUNT DEPENDING ON BLOOD GLUCOSE LEVEL
     Route: 058
     Dates: start: 20200901, end: 20200917
  21. HUMULIN R [Concomitant]
     Active Substance: INSULIN HUMAN
     Indication: DIABETES MELLITUS
     Dosage: APPROPRIATE AMOUNT DEPENDING ON BLOOD GLUCOSE LEVEL
     Route: 058
     Dates: start: 20200917
  22. PITAVASTATIN. [Suspect]
     Active Substance: PITAVASTATIN CALCIUM
     Indication: DYSLIPIDAEMIA
     Route: 048
  23. SOLU?MEDROL [Suspect]
     Active Substance: METHYLPREDNISOLONE SODIUM SUCCINATE
     Route: 042
     Dates: start: 20200915, end: 20200917
  24. PREDONINE [Suspect]
     Active Substance: PREDNISOLONE
     Route: 048
     Dates: start: 20200911, end: 20200912
  25. PREDONINE [Suspect]
     Active Substance: PREDNISOLONE
     Route: 048
     Dates: start: 20200924, end: 20200930
  26. PREDONINE [Suspect]
     Active Substance: PREDNISOLONE
     Route: 048
     Dates: start: 20201007
  27. TOARASET [Concomitant]
     Active Substance: ACETAMINOPHEN\TRAMADOL HYDROCHLORIDE
     Indication: RELAPSING-REMITTING MULTIPLE SCLEROSIS
     Route: 048
     Dates: start: 20190813
  28. KETOPROFEN. [Concomitant]
     Active Substance: KETOPROFEN
     Indication: RELAPSING-REMITTING MULTIPLE SCLEROSIS
     Route: 062

REACTIONS (9)
  - Multiple sclerosis relapse [Recovered/Resolved with Sequelae]
  - Hepatic function abnormal [Not Recovered/Not Resolved]
  - Haematuria [Recovered/Resolved]
  - White blood cell count increased [Recovered/Resolved]
  - Blood creatine phosphokinase increased [Recovered/Resolved]
  - Stomatitis [Not Recovered/Not Resolved]
  - Proteinuria [Recovered/Resolved]
  - Ventricular extrasystoles [Not Recovered/Not Resolved]
  - Therapeutic product effect incomplete [Unknown]

NARRATIVE: CASE EVENT DATE: 20190716
